FAERS Safety Report 11065811 (Version 2)
Quarter: 2015Q2

REPORT INFORMATION
  Report Type: Spontaneous
  Country: US (occurrence: US)
  Receive Date: 20150425
  Receipt Date: 20150524
  Transmission Date: 20150821
  Serious: No
  Sender: FDA-Public Use
  Company Number: US-JNJFOC-20150414475

PATIENT
  Sex: Male

DRUGS (2)
  1. DURAGESIC [Suspect]
     Active Substance: FENTANYL
     Indication: PAIN
     Route: 062
     Dates: start: 2011, end: 2012
  2. DURAGESIC [Suspect]
     Active Substance: FENTANYL
     Indication: PAIN
     Route: 062
     Dates: end: 2011

REACTIONS (1)
  - Adverse event [Unknown]
